FAERS Safety Report 4407029-8 (Version None)
Quarter: 2004Q3

REPORT INFORMATION
  Report Type: 
  Country: None (occurrence: None)
  Receive Date: 20040724
  Receipt Date: 20040714
  Transmission Date: 20050211
  Serious: Yes (Other)
  Sender: FDA-Public Use
  Company Number: PHBS2004US09537

PATIENT
  Age: 85 Year
  Sex: Male

DRUGS (8)
  1. METOPROLOL TARTRATE [Suspect]
  2. HYDROCHLOROTHIAZIDE [Suspect]
  3. TERAZOSIN HCL [Suspect]
  4. GLIPIZIDE [Suspect]
  5. METOCLOPRAMIDE [Concomitant]
  6. ACETAMINOPHEN [Concomitant]
  7. TEMAZEPAM [Concomitant]
  8. ASPIRIN [Concomitant]

REACTIONS (12)
  - BALANCE DISORDER [None]
  - CATARACT [None]
  - FALL [None]
  - GAIT DISTURBANCE [None]
  - HYPOAESTHESIA [None]
  - MUSCLE RIGIDITY [None]
  - NEUROPATHY PERIPHERAL [None]
  - PARKINSONISM [None]
  - POSITIVE ROMBERGISM [None]
  - SENSORY DISTURBANCE [None]
  - SPEECH DISORDER [None]
  - VIBRATION TEST ABNORMAL [None]
